FAERS Safety Report 8776351 (Version 1)
Quarter: 2012Q4

REPORT INFORMATION
  Report Type: 
  Country: CA (occurrence: CA)
  Receive Date: 20120910
  Receipt Date: 20120910
  Transmission Date: 20130627
  Serious: Yes (Death)
  Sender: FDA-Public Use
  Company Number: PHHY2012CA077649

PATIENT
  Age: 66 Year
  Sex: Male

DRUGS (1)
  1. ZOMETA [Suspect]
     Indication: BLADDER CANCER
     Dosage: 4 mg, Every 4 weeks
     Route: 042
     Dates: start: 20120324

REACTIONS (1)
  - Death [Fatal]
